FAERS Safety Report 9772713 (Version 3)
Quarter: 2014Q1

REPORT INFORMATION
  Report Type: Spontaneous
  Country: JP (occurrence: JP)
  Receive Date: 20131219
  Receipt Date: 20140220
  Transmission Date: 20141002
  Serious: Yes (Hospitalization)
  Sender: FDA-Public Use
  Company Number: JP-JNJFOC-20131210062

PATIENT
  Age: 30 Year
  Sex: Female

DRUGS (1)
  1. REMICADE [Suspect]
     Indication: BEHCET^S SYNDROME
     Route: 042

REACTIONS (2)
  - Behcet^s syndrome [Recovering/Resolving]
  - Oral herpes [Unknown]
